FAERS Safety Report 23824630 (Version 6)
Quarter: 2025Q1

REPORT INFORMATION
  Report Type: Report from Study
  Country: US (occurrence: US)
  Receive Date: 20240507
  Receipt Date: 20250327
  Transmission Date: 20250409
  Serious: Yes (Other)
  Sender: INSMED
  Company Number: US-INSMED, INC.-2024-01792-US

PATIENT
  Sex: Male

DRUGS (3)
  1. ARIKAYCE [Suspect]
     Active Substance: AMIKACIN
     Indication: Mycobacterium avium complex infection
     Dosage: 590 MILLIGRAM, QD
     Route: 055
     Dates: start: 20240422, end: 202404
  2. ARIKAYCE [Suspect]
     Active Substance: AMIKACIN
     Indication: Lung transplant
     Dosage: 590 MILLIGRAM, QD
     Route: 055
  3. OXYGEN [Concomitant]
     Active Substance: OXYGEN
     Indication: Product used for unknown indication
     Route: 055
     Dates: start: 202404

REACTIONS (7)
  - Oxygen saturation decreased [Not Recovered/Not Resolved]
  - Lung transplant [Unknown]
  - Dyspnoea [Not Recovered/Not Resolved]
  - Aphonia [Recovering/Resolving]
  - Dependence on oxygen therapy [Not Recovered/Not Resolved]
  - Therapy interrupted [Unknown]
  - Product dose omission issue [Unknown]

NARRATIVE: CASE EVENT DATE: 20240101
